FAERS Safety Report 15490287 (Version 3)
Quarter: 2018Q4

REPORT INFORMATION
  Report Type: Report from Study
  Country: GB (occurrence: GB)
  Receive Date: 20181011
  Receipt Date: 20181228
  Transmission Date: 20190205
  Serious: Yes (Hospitalization)
  Sender: FDA-Public Use
  Company Number: GB-CELGENEUS-GBR-20181002219

PATIENT
  Age: 15 Year
  Sex: Female
  Weight: 44.5 kg

DRUGS (5)
  1. CC-4047 [Suspect]
     Active Substance: POMALIDOMIDE
     Indication: BRAIN NEOPLASM
     Dosage: 3.5 MILLIGRAM
     Route: 048
     Dates: start: 20180924, end: 20180924
  2. CC-4047 [Suspect]
     Active Substance: POMALIDOMIDE
     Dosage: 3.5 MILLIGRAM
     Route: 048
     Dates: start: 20181022
  3. ONDANSETRON [Concomitant]
     Active Substance: ONDANSETRON
     Indication: NAUSEA
     Route: 065
  4. FLUOXETINE [Concomitant]
     Active Substance: FLUOXETINE HYDROCHLORIDE
     Indication: ANXIETY
     Route: 065
     Dates: start: 20151013
  5. KEPPRA [Concomitant]
     Active Substance: LEVETIRACETAM
     Indication: SEIZURE
     Route: 065
     Dates: start: 20151013

REACTIONS (1)
  - Cranial nerve infection [Recovered/Resolved]

NARRATIVE: CASE EVENT DATE: 20181002
